FAERS Safety Report 7530317-3 (Version None)
Quarter: 2011Q2

REPORT INFORMATION
  Report Type: 
  Country: None (occurrence: None)
  Receive Date: 20110531
  Receipt Date: 20110516
  Transmission Date: 20111010
  Serious: Yes (Disabling)
  Sender: FDA-Public Use
  Company Number: 2011MA006203

PATIENT
  Age: 64 Year
  Sex: Female

DRUGS (7)
  1. FEMOSTON [Concomitant]
  2. DOXYCYCLINE [Concomitant]
  3. LACRI-LUBE [Concomitant]
  4. DICLOFENAC [Concomitant]
  5. OPTIVE [Concomitant]
  6. DOXAZOSIN MESYLATE [Concomitant]
  7. LOSARTAN POTASSIUM [Suspect]

REACTIONS (1)
  - DRY EYE [None]
